FAERS Safety Report 4380633-1 (Version None)
Quarter: 2004Q2

REPORT INFORMATION
  Report Type: 
  Country: None (occurrence: None)
  Receive Date: 20040618
  Receipt Date: 20040511
  Transmission Date: 20050107
  Serious: Yes (Other)
  Sender: FDA-Public Use
  Company Number: PHHO2004CA06868

PATIENT
  Sex: Female
  Weight: 63 kg

DRUGS (1)
  1. DIOVAN [Suspect]
     Dosage: 80 MG / DAY
     Route: 048
     Dates: start: 20040104, end: 20040122

REACTIONS (3)
  - DIZZINESS [None]
  - HYPOTENSION [None]
  - MALAISE [None]
